FAERS Safety Report 23556068 (Version 3)
Quarter: 2024Q4

REPORT INFORMATION
  Report Type: Report from Study
  Country: US (occurrence: US)
  Receive Date: 20240222
  Receipt Date: 20241126
  Transmission Date: 20250114
  Serious: Yes (Hospitalization, Other)
  Sender: AMNEAL
  Company Number: US-AMNEAL PHARMACEUTICALS-2024-AMRX-00497

PATIENT
  Sex: Male
  Weight: 72.562 kg

DRUGS (1)
  1. CARBIDOPA\LEVODOPA [Suspect]
     Active Substance: CARBIDOPA\LEVODOPA
     Indication: Parkinson^s disease
     Dosage: (145/36.25 MG) 1 CAPSULES, 4 /DAY
     Route: 048

REACTIONS (3)
  - Post procedural haemorrhage [Recovered/Resolved]
  - Parkinson^s disease [Unknown]
  - Speech disorder [Unknown]
